FAERS Safety Report 9643467 (Version 4)
Quarter: 2024Q2

REPORT INFORMATION
  Report Type: Report from Study
  Country: US (occurrence: US)
  Receive Date: 20131024
  Receipt Date: 20240626
  Transmission Date: 20240716
  Serious: Yes (Hospitalization, Other)
  Sender: FDA-Public Use
  Company Number: US-JNJFOC-20130812916

PATIENT
  Age: 67 Year
  Sex: Female
  Weight: 133.93 kg

DRUGS (2)
  1. INFLIXIMAB [Suspect]
     Active Substance: INFLIXIMAB
     Indication: Psoriasis
     Route: 041
     Dates: start: 200806, end: 201208
  2. INFLIXIMAB [Suspect]
     Active Substance: INFLIXIMAB
     Route: 041
     Dates: start: 20080627, end: 20121018

REACTIONS (6)
  - Pneumonia pseudomonal [Recovered/Resolved]
  - Left ventricular failure [Recovered/Resolved]
  - Urinary tract infection pseudomonal [Recovered/Resolved]
  - Acute respiratory failure [Recovered/Resolved]
  - Pickwickian syndrome [Unknown]
  - Iron deficiency anaemia [Unknown]

NARRATIVE: CASE EVENT DATE: 20130213
